FAERS Safety Report 4578634-3 (Version None)
Quarter: 2005Q1

REPORT INFORMATION
  Report Type: 
  Country: None (occurrence: None)
  Receive Date: 20050209
  Receipt Date: 20050209
  Transmission Date: 20050727
  Serious: Yes (Hospitalization)
  Sender: FDA-Public Use
  Company Number: None

PATIENT
  Age: 51 Year
  Sex: Female

DRUGS (7)
  1. TIZANIDINE HCL [Suspect]
  2. ZOLPIDEM TARTRATE [Concomitant]
  3. VENLAFAXINE HCL [Concomitant]
  4. PROPRANOLOL [Concomitant]
  5. LEVOTHYROXINE [Concomitant]
  6. ROPINIROLE [Concomitant]
  7. LORATADINE [Concomitant]

REACTIONS (4)
  - JAUNDICE [None]
  - MYALGIA [None]
  - NAUSEA [None]
  - VOMITING [None]
